FAERS Safety Report 8256362 (Version 4)
Quarter: 2012Q4

REPORT INFORMATION
  Report Type: Report from Study
  Country: GB (occurrence: GB)
  Receive Date: 20111121
  Receipt Date: 20121026
  Transmission Date: 20130627
  Serious: Yes (Other)
  Sender: FDA-Public Use
  Company Number: GB-CELGENEUS-167-C5013-11111257

PATIENT
  Age: 75 Year
  Sex: Male

DRUGS (3)
  1. CC-5013 [Suspect]
     Indication: MULTIPLE MYELOMA
     Dosage: 25 Milligram
     Route: 048
     Dates: start: 20091223
  2. CC-5013 [Suspect]
     Route: 048
     Dates: end: 20110517
  3. DEXAMETHASONE [Suspect]
     Indication: MULTIPLE MYELOMA
     Route: 065

REACTIONS (1)
  - Prostate cancer [Not Recovered/Not Resolved]
